FAERS Safety Report 7085850-8 (Version None)
Quarter: 2010Q4

REPORT INFORMATION
  Report Type: 
  Country: None (occurrence: None)
  Receive Date: 20101105
  Receipt Date: 20101028
  Transmission Date: 20110411
  Serious: Yes (Hospitalization)
  Sender: FDA-Public Use
  Company Number: CA-ROCHE-737546

PATIENT
  Sex: Female
  Weight: 69.9 kg

DRUGS (10)
  1. TRASTUZUMAB [Suspect]
     Dosage: DATE OF LAST DOSE PRIOR TO SAE:18 AUG 2010
     Route: 042
     Dates: start: 20100818
  2. PERTUZUMAB [Suspect]
     Dosage: DATE OF LAST DOSE PRIOR TO SAE:18 AUG 2010
     Route: 042
     Dates: start: 20100818
  3. DOCETAXEL [Suspect]
     Dosage: DATE OF LAST DOSE PRIOR TO SAE:18 AUG 2010
     Route: 042
     Dates: start: 20100818
  4. DOCETAXEL [Suspect]
     Dosage: DOSE RDEUCED ON 29 SEPTEMBER 2010, IT WAS 106 MG EVERY 3 WEEKS CYCLE 3
     Route: 042
  5. LOPERAMIDE [Concomitant]
     Dosage: FREQUENCY: EVERY 4
  6. ASPIRIN [Concomitant]
  7. METFORMIN HCL [Concomitant]
  8. DIAMICRON [Concomitant]
     Dosage: FRQUENCY NOT REPORTED
  9. HYDROCHLOROTHIAZIDE [Concomitant]
  10. PROCHLORPERAZINE [Concomitant]
     Dosage: FREQUENCY: EVERY 4 PM

REACTIONS (1)
  - GASTROENTERITIS [None]
